FAERS Safety Report 4329947-1 (Version None)
Quarter: 2004Q1

REPORT INFORMATION
  Report Type: 
  Country: None (occurrence: None)
  Receive Date: 20040329
  Receipt Date: 20040316
  Transmission Date: 20041129
  Serious: Yes (Death)
  Sender: FDA-Public Use
  Company Number: 040319-0000314

PATIENT
  Age: 35 Year
  Sex: Male

DRUGS (1)
  1. METHAMPHETAMINE HCL [Suspect]

REACTIONS (2)
  - DRUG ABUSER [None]
  - DRUG TOXICITY [None]
